FAERS Safety Report 23284703 (Version 1)
Quarter: 2023Q4

REPORT INFORMATION
  Report Type: Spontaneous
  Country: IT (occurrence: IT)
  Receive Date: 20231211
  Receipt Date: 20231211
  Transmission Date: 20240109
  Serious: Yes (Life-Threatening)
  Sender: FDA-Public Use
  Company Number: None

PATIENT
  Age: 9 Year
  Sex: Male
  Weight: 22 kg

DRUGS (3)
  1. DEFERASIROX [Suspect]
     Active Substance: DEFERASIROX
     Indication: Thalassaemia
     Dosage: 90 MG,UNA COMPRESSA AL GIORNO
     Route: 048
     Dates: start: 20230717, end: 20230724
  2. DEFERASIROX [Concomitant]
     Active Substance: DEFERASIROX
     Indication: Thalassaemia
     Dosage: 360 MG
     Route: 048
     Dates: start: 20230615, end: 20230716
  3. EXJADE [Concomitant]
     Active Substance: DEFERASIROX
     Indication: Thalassaemia
     Dosage: 180 MG
     Route: 048
     Dates: start: 20230615, end: 20230716

REACTIONS (2)
  - Hyperammonaemia [Recovered/Resolved]
  - Metabolic acidosis [Recovered/Resolved]

NARRATIVE: CASE EVENT DATE: 20230724
